FAERS Safety Report 7396470-X (Version None)
Quarter: 2011Q2

REPORT INFORMATION
  Report Type: 
  Country: None (occurrence: None)
  Receive Date: 20110406
  Receipt Date: 20101006
  Transmission Date: 20111010
  Serious: Yes (Other)
  Sender: FDA-Public Use
  Company Number: US-BAYER-200939673NA

PATIENT
  Sex: Female
  Weight: 86 kg

DRUGS (16)
  1. YASMIN [Suspect]
     Indication: CONTRACEPTION
     Dosage: UNK
     Dates: start: 20061201, end: 20071201
  2. CLONAZEPAM [Concomitant]
     Indication: DEPRESSION
  3. YAZ [Suspect]
     Indication: CONTRACEPTION
  4. ALBUTEROL [Concomitant]
  5. IBUPROFEN [Concomitant]
     Dosage: UNK
     Dates: start: 20070101
  6. PREVACID [Concomitant]
     Dosage: UNK
     Dates: start: 20071127
  7. ZOLOFT [Concomitant]
     Indication: ANXIETY
     Dosage: UNK
     Dates: start: 20060101
  8. PHENERGAN [Concomitant]
     Dosage: UNK
     Dates: start: 20071101
  9. UNCODEABLE ^UNCLASSIFIABLE^ [Concomitant]
     Indication: ASTHMA
     Dosage: UNK
     Dates: start: 20030101
  10. BENTYL [Concomitant]
     Dosage: UNK
     Dates: start: 20071127
  11. ANTIBIOTICS [Concomitant]
     Dosage: UNK UNK, PRN
     Dates: start: 20060101
  12. NSAID'S [Concomitant]
     Indication: PAIN
     Dosage: UNK UNK, PRN
  13. ZOLOFT [Concomitant]
     Indication: DEPRESSION
  14. CLONAZEPAM [Concomitant]
     Indication: ANXIETY
     Dosage: UNK
     Dates: start: 20060101
  15. LEXAPRO [Concomitant]
     Indication: ANXIETY
     Dosage: UNK
     Dates: start: 20060101
  16. LEXAPRO [Concomitant]
     Indication: DEPRESSION

REACTIONS (9)
  - GALLBLADDER DISORDER [None]
  - CHEST PAIN [None]
  - CHOLECYSTITIS ACUTE [None]
  - ABDOMINAL PAIN UPPER [None]
  - VOMITING [None]
  - DYSPEPSIA [None]
  - NAUSEA [None]
  - GASTROOESOPHAGEAL REFLUX DISEASE [None]
  - PROCEDURAL PAIN [None]
